FAERS Safety Report 12640544 (Version 3)
Quarter: 2016Q3

REPORT INFORMATION
  Report Type: Spontaneous
  Country: CH (occurrence: CH)
  Receive Date: 20160810
  Receipt Date: 20160823
  Transmission Date: 20161109
  Serious: Yes (Hospitalization, Other)
  Sender: FDA-Public Use
  Company Number: CH-ELI_LILLY_AND_COMPANY-CH201607013521

PATIENT
  Age: 45 Year
  Sex: Female
  Weight: 76 kg

DRUGS (6)
  1. ASPIRIN CARDIO [Concomitant]
     Active Substance: ASPIRIN
     Indication: CARDIAC DISORDER
     Dosage: 100 MG, QD
     Route: 065
     Dates: start: 20160321
  2. ZYPREXA [Suspect]
     Active Substance: OLANZAPINE
     Dosage: 10 MG, QD
     Route: 048
     Dates: start: 20070423, end: 20160601
  3. BRILIQUE [Concomitant]
     Active Substance: TICAGRELOR
     Indication: CARDIAC DISORDER
     Dosage: 90 MG, BID
     Route: 065
     Dates: start: 20160321
  4. ZYPREXA [Suspect]
     Active Substance: OLANZAPINE
     Indication: SCHIZOPHRENIA
     Dosage: UNK UNK, QD
     Route: 065
  5. CONCOR [Concomitant]
     Active Substance: BISOPROLOL FUMARATE
     Indication: HYPERCHOLESTEROLAEMIA
     Dosage: 2.5 MG, QD
     Route: 065
     Dates: start: 20160321
  6. CRESTOR [Concomitant]
     Active Substance: ROSUVASTATIN CALCIUM
     Indication: HYPERCHOLESTEROLAEMIA
     Dosage: 20 MG, QD
     Route: 065
     Dates: start: 20160321

REACTIONS (5)
  - Coronary artery disease [Unknown]
  - Arteriosclerosis coronary artery [Unknown]
  - Hypercholesterolaemia [Unknown]
  - Metabolic syndrome [Unknown]
  - Weight increased [Unknown]

NARRATIVE: CASE EVENT DATE: 201603
